FAERS Safety Report 4697980-6 (Version None)
Quarter: 2005Q2

REPORT INFORMATION
  Report Type: 
  Country: None (occurrence: None)
  Receive Date: 20050622
  Receipt Date: 20050622
  Transmission Date: 20051028
  Serious: Yes (Death)
  Sender: FDA-Public Use
  Company Number: None

PATIENT
  Sex: Female
  Weight: 53.8 kg

DRUGS (1)
  1. RAPAMYCIN 2 MG [Suspect]
     Indication: PANCREATIC CARCINOMA
     Dosage: 2 MG QD ORAL
     Route: 048
     Dates: start: 20041228, end: 20050114

REACTIONS (2)
  - DISEASE PROGRESSION [None]
  - RENAL FAILURE [None]
